FAERS Safety Report 18694936 (Version 1)
Quarter: 2021Q1

REPORT INFORMATION
  Report Type: Spontaneous
  Country: US (occurrence: US)
  Receive Date: 20210104
  Receipt Date: 20210104
  Transmission Date: 20210419
  Serious: No
  Sender: FDA-Public Use
  Company Number: US-TOLMAR, INC.-20US024030

PATIENT
  Age: 2 Decade
  Sex: Male

DRUGS (2)
  1. KETOCONAZOLE. [Suspect]
     Active Substance: KETOCONAZOLE
     Indication: ALOPECIA
     Dosage: UNK, THREE TIMES PER WEEK
     Route: 061
  2. PROPECIA [Suspect]
     Active Substance: FINASTERIDE
     Indication: ALOPECIA
     Route: 065

REACTIONS (1)
  - Blood testosterone abnormal [Recovered/Resolved]
